FAERS Safety Report 4656825-0 (Version None)
Quarter: 2005Q2

REPORT INFORMATION
  Report Type: 
  Country: None (occurrence: None)
  Receive Date: 20050505
  Receipt Date: 20050420
  Transmission Date: 20051028
  Serious: Yes (Other)
  Sender: FDA-Public Use
  Company Number: B0378740A

PATIENT
  Age: 27 Year
  Sex: Female

DRUGS (6)
  1. ADVAIR DISKUS 100/50 [Suspect]
     Indication: ASTHMA
     Dosage: INHALED
     Route: 055
  2. RITONAVIR (RITONAVIR) [Suspect]
     Indication: HIV INFECTION
     Dosage: 200 MG / PER DAY
  3. LOPINAVIR [Concomitant]
  4. METHADONE HYDROCHLORIDE [Concomitant]
  5. BENZODIAZEPINES [Concomitant]
  6. SAQUINAVIR [Concomitant]

REACTIONS (4)
  - CUSHING'S SYNDROME [None]
  - DRUG INTERACTION [None]
  - IATROGENIC INJURY [None]
  - POSTPARTUM DISORDER [None]
